FAERS Safety Report 15460596 (Version 1)
Quarter: 2018Q4

REPORT INFORMATION
  Report Type: Spontaneous
  Country: KR (occurrence: KR)
  Receive Date: 20181003
  Receipt Date: 20181003
  Transmission Date: 20190204
  Serious: Yes (Other)
  Sender: FDA-Public Use
  Company Number: PHHY2018KR110316

PATIENT
  Age: 53 Year
  Sex: Male

DRUGS (1)
  1. CARBAMAZEPINE. [Suspect]
     Active Substance: CARBAMAZEPINE
     Indication: EPILEPSY
     Dosage: UNK
     Route: 065

REACTIONS (12)
  - Rash maculo-papular [Unknown]
  - Dyspnoea at rest [Unknown]
  - Face oedema [Unknown]
  - Lymphadenopathy [Unknown]
  - Alanine aminotransferase increased [Unknown]
  - Dysphagia [Recovering/Resolving]
  - Rash [Unknown]
  - Skin lesion [Unknown]
  - Pruritus [Unknown]
  - Dysphonia [Recovering/Resolving]
  - Drug reaction with eosinophilia and systemic symptoms [Unknown]
  - Laryngeal oedema [Recovered/Resolved]
